FAERS Safety Report 6400705-7 (Version None)
Quarter: 2009Q4

REPORT INFORMATION
  Report Type: 
  Country: None (occurrence: None)
  Receive Date: 20091014
  Receipt Date: 20091002
  Transmission Date: 20100525
  Serious: Yes (Hospitalization, Other)
  Sender: FDA-Public Use
  Company Number: US-ELI_LILLY_AND_COMPANY-US200910001032

PATIENT
  Sex: Male

DRUGS (2)
  1. FORTEO [Suspect]
     Dosage: UNK, UNK
     Dates: start: 20090301
  2. ASPIRIN [Concomitant]
     Dosage: UNK, UNK
     Dates: start: 20090101

REACTIONS (2)
  - HIP ARTHROPLASTY [None]
  - ULCER HAEMORRHAGE [None]
